FAERS Safety Report 4874461-8 (Version None)
Quarter: 2006Q1

REPORT INFORMATION
  Report Type: 
  Country: None (occurrence: None)
  Receive Date: 20060106
  Receipt Date: 20060105
  Transmission Date: 20060701
  Serious: Yes (Life-Threatening, Hospitalization)
  Sender: FDA-Public Use
  Company Number: GB-BRISTOL-MYERS SQUIBB COMPANY-13237888

PATIENT
  Age: 9 Year
  Sex: Female
  Weight: 30 kg

DRUGS (5)
  1. DOXORUBICIN [Suspect]
     Indication: LEUKAEMIA
     Route: 042
     Dates: start: 20051122, end: 20051129
  2. VINCRISTINE [Suspect]
     Indication: LEUKAEMIA
     Route: 042
     Dates: start: 20051122, end: 20051129
  3. DEXAMETHASONE TAB [Suspect]
     Indication: LEUKAEMIA
     Route: 048
     Dates: start: 20051122, end: 20051129
  4. NOXAFIL [Suspect]
     Indication: FUNGAL INFECTION
     Route: 048
     Dates: start: 20050614, end: 20051120
  5. ASPARAGINASE [Suspect]
     Indication: LEUKAEMIA
     Dosage: 1000 IU/M^2
     Dates: start: 20051123

REACTIONS (2)
  - BACTERIAL SEPSIS [None]
  - HYPOTENSION [None]
